FAERS Safety Report 14479660 (Version 1)
Quarter: 2018Q1

REPORT INFORMATION
  Report Type: Report from Study
  Country: BR (occurrence: BR)
  Receive Date: 20180202
  Receipt Date: 20180202
  Transmission Date: 20180509
  Serious: Yes (Death, Hospitalization)
  Sender: FDA-Public Use
  Company Number: PHHY2018BR016578

PATIENT
  Sex: Female

DRUGS (1)
  1. EXELON PATCH [Suspect]
     Active Substance: RIVASTIGMINE
     Indication: DEMENTIA ALZHEIMER^S TYPE
     Dosage: 1 DF, QD
     Route: 062
     Dates: start: 2013

REACTIONS (7)
  - Multiple organ dysfunction syndrome [Fatal]
  - Dementia Alzheimer^s type [Fatal]
  - Application site dryness [Unknown]
  - Pneumonia aspiration [Unknown]
  - Application site hypersensitivity [Unknown]
  - Application site erythema [Unknown]
  - Sepsis [Fatal]
